FAERS Safety Report 8476354-6 (Version None)
Quarter: 2012Q2

REPORT INFORMATION
  Report Type: 
  Country: None (occurrence: None)
  Receive Date: 20120628
  Receipt Date: 20120620
  Transmission Date: 20120825
  Serious: Yes (Hospitalization, Other)
  Sender: FDA-Public Use
  Company Number: IT-TEVA-336961USA

PATIENT
  Sex: Male

DRUGS (3)
  1. TREANDA [Suspect]
     Indication: B-CELL LYMPHOMA STAGE IV
     Route: 042
     Dates: start: 20120229, end: 20120322
  2. OMEPRAZOLE [Concomitant]
  3. PALONOSETRON HYDROCHLORIDE [Concomitant]

REACTIONS (2)
  - ACUTE CORONARY SYNDROME [None]
  - PYREXIA [None]
